FAERS Safety Report 23656371 (Version 3)
Quarter: 2025Q1

REPORT INFORMATION
  Report Type: Report from Study
  Country: US (occurrence: US)
  Receive Date: 20240321
  Receipt Date: 20250306
  Transmission Date: 20250409
  Serious: Yes (Hospitalization, Other)
  Sender: TAKEDA
  Company Number: US-TAKEDA-2022TUS019066

PATIENT
  Age: 55 Year
  Sex: Female

DRUGS (2)
  1. GLASSIA [Suspect]
     Active Substance: .ALPHA.1-PROTEINASE INHIBITOR HUMAN
     Indication: Alpha-1 antitrypsin deficiency
     Dosage: UNK UNK, 1/WEEK
  2. GLASSIA [Suspect]
     Active Substance: .ALPHA.1-PROTEINASE INHIBITOR HUMAN

REACTIONS (7)
  - Atrial fibrillation [Unknown]
  - Cataract [Unknown]
  - Cardiac disorder [Unknown]
  - Headache [Unknown]
  - COVID-19 [Unknown]
  - Influenza [Unknown]
  - Illness [Unknown]

NARRATIVE: CASE EVENT DATE: 20250305
